FAERS Safety Report 8937116 (Version 1)
Quarter: 2012Q4

REPORT INFORMATION
  Report Type: Spontaneous
  Country: US (occurrence: None)
  Receive Date: 20121128
  Receipt Date: 20121128
  Transmission Date: 20130627
  Serious: No
  Sender: FDA-Public Use
  Company Number: None

PATIENT
  Age: 44 Year
  Sex: Female

DRUGS (1)
  1. EGRIFTA [Suspect]
     Indication: HIV INFECTION
     Route: 058
     Dates: start: 20121023, end: 20121123

REACTIONS (1)
  - Incorrect dose administered [None]
